FAERS Safety Report 14448651 (Version 2)
Quarter: 2018Q2

REPORT INFORMATION
  Report Type: Spontaneous
  Country: US (occurrence: US)
  Receive Date: 20180126
  Receipt Date: 20180612
  Transmission Date: 20180711
  Serious: Yes (Hospitalization)
  Sender: FDA-Public Use
  Company Number: US-DSJP-DSU-2017-138403

PATIENT

DRUGS (2)
  1. TRIBENZOR [Suspect]
     Active Substance: AMLODIPINE BESYLATE\HYDROCHLOROTHIAZIDE\OLMESARTAN MEDOXOMIL
     Indication: HYPERTENSION
     Dosage: 40-10-25 MG, QD
     Route: 048
     Dates: start: 20131218, end: 20160128
  2. TRIBENZOR [Suspect]
     Active Substance: AMLODIPINE BESYLATE\HYDROCHLOROTHIAZIDE\OLMESARTAN MEDOXOMIL
     Dosage: 40-10-25 MG, QD
     Route: 048
     Dates: end: 20170118

REACTIONS (8)
  - Acute kidney injury [Recovering/Resolving]
  - Diverticulitis [Recovering/Resolving]
  - Diverticular perforation [Recovering/Resolving]
  - Urinary tract infection [Recovering/Resolving]
  - Cholelithiasis [Unknown]
  - Bradycardia [Recovered/Resolved]
  - Peritonitis [Recovering/Resolving]
  - Sprue-like enteropathy [Recovering/Resolving]

NARRATIVE: CASE EVENT DATE: 20141223
